FAERS Safety Report 7289930-3 (Version None)
Quarter: 2011Q1

REPORT INFORMATION
  Report Type: 
  Country: None (occurrence: None)
  Receive Date: 20110214
  Receipt Date: 20110207
  Transmission Date: 20110831
  Serious: Yes (Hospitalization)
  Sender: FDA-Public Use
  Company Number: GB-ASTELLAS-2011EU000217

PATIENT
  Age: 70 Year
  Sex: Female
  Weight: 88.5 kg

DRUGS (5)
  1. ASPIRIN [Concomitant]
     Dosage: 75 MG, UNKNOWN/D
     Route: 048
  2. PARACETAMOL [Concomitant]
     Dosage: 500 MG, UNKNOWN/D
     Route: 048
  3. VESICARE [Suspect]
     Indication: BLADDER IRRITATION
     Dosage: 5 MG, UID/QD
     Route: 048
     Dates: start: 20101118, end: 20101220
  4. SIMVASTATIN [Concomitant]
     Dosage: 20 MG, UNKNOWN/D
     Route: 048
  5. ISMO [Concomitant]
     Dosage: 10 MG, UNKNOWN/D
     Route: 048

REACTIONS (1)
  - ANGLE CLOSURE GLAUCOMA [None]
